FAERS Safety Report 16856118 (Version 1)
Quarter: 2019Q3

REPORT INFORMATION
  Report Type: Spontaneous
  Country: FR (occurrence: FR)
  Receive Date: 20190926
  Receipt Date: 20190926
  Transmission Date: 20191005
  Serious: Yes (Hospitalization)
  Sender: FDA-Public Use
  Company Number: FR-MYLANLABS-2019M1089051

PATIENT
  Age: 67 Year
  Sex: Male
  Weight: 82 kg

DRUGS (2)
  1. CISPLATIN. [Suspect]
     Active Substance: CISPLATIN
     Indication: NEOPLASM MALIGNANT
     Dosage: 37.5 MILLIGRAM
     Route: 042
     Dates: end: 20190319
  2. GEMCITABINE. [Suspect]
     Active Substance: GEMCITABINE
     Indication: NEOPLASM MALIGNANT
     Dosage: 1000 MILLIGRAM, BIWEEKLY
     Route: 042
     Dates: end: 20190319

REACTIONS (1)
  - Pulmonary oedema [Recovering/Resolving]

NARRATIVE: CASE EVENT DATE: 20190403
